FAERS Safety Report 11638776 (Version 1)
Quarter: 2015Q4

REPORT INFORMATION
  Report Type: Spontaneous
  Country: AU (occurrence: AU)
  Receive Date: 20151016
  Receipt Date: 20151016
  Transmission Date: 20160304
  Serious: Yes (Life-Threatening, Hospitalization, Other)
  Sender: FDA-Public Use
  Company Number: AU-ASTRAZENECA-2015SF00100

PATIENT
  Sex: Male
  Weight: 3.6 kg

DRUGS (4)
  1. QUETIAPINE [Suspect]
     Active Substance: QUETIAPINE
     Indication: BIPOLAR DISORDER
     Route: 048
  2. THYROXINE [Concomitant]
     Active Substance: LEVOTHYROXINE
     Indication: HYPOTHYROIDISM
     Route: 065
  3. LAMOTRIGINE. [Suspect]
     Active Substance: LAMOTRIGINE
     Indication: BIPOLAR DISORDER
     Dosage: AT 30 WEEKS^ GEASTATION INCREASED TO 500 MG/DAY
     Route: 065
  4. LAMOTRIGINE. [Suspect]
     Active Substance: LAMOTRIGINE
     Indication: BIPOLAR DISORDER
     Route: 065

REACTIONS (8)
  - Hypoxic-ischaemic encephalopathy [Recovering/Resolving]
  - Pulse absent [Recovered/Resolved]
  - Neonatal respiratory failure [Recovering/Resolving]
  - Musculoskeletal stiffness [Recovering/Resolving]
  - Neonatal behavioural syndrome [Recovering/Resolving]
  - Feeding disorder of infancy or early childhood [Recovering/Resolving]
  - Irritability [Recovering/Resolving]
  - Drug withdrawal syndrome neonatal [Recovering/Resolving]
